FAERS Safety Report 6034443-X (Version None)
Quarter: 2009Q1

REPORT INFORMATION
  Report Type: 
  Country: None (occurrence: None)
  Receive Date: 20090112
  Receipt Date: 20090108
  Transmission Date: 20090719
  Serious: Yes (Hospitalization)
  Sender: FDA-Public Use
  Company Number: B0553208A

PATIENT
  Age: 78 Year
  Sex: Male

DRUGS (7)
  1. AUGMENTIN '125' [Suspect]
     Indication: DRUG USE FOR UNKNOWN INDICATION
     Route: 048
     Dates: start: 20080216, end: 20080223
  2. CARDYL [Concomitant]
     Route: 048
     Dates: start: 20080101, end: 20080306
  3. OMEPRAZOLE [Concomitant]
     Indication: DYSPEPSIA
     Route: 048
     Dates: start: 20080101
  4. VITAMIN B-12 [Concomitant]
     Route: 048
     Dates: start: 20080101
  5. ZAMENE [Concomitant]
     Route: 048
     Dates: start: 20080216, end: 20080224
  6. NOLOTIL [Concomitant]
     Indication: PAIN
     Route: 030
     Dates: start: 20080225
  7. EFFERALGAN [Concomitant]
     Indication: PAIN
     Route: 048
     Dates: start: 20080225

REACTIONS (10)
  - ACHOLIA [None]
  - ALANINE AMINOTRANSFERASE INCREASED [None]
  - ASPARTATE AMINOTRANSFERASE INCREASED [None]
  - BILIRUBIN CONJUGATED INCREASED [None]
  - BLOOD ALKALINE PHOSPHATASE INCREASED [None]
  - CHOLURIA [None]
  - COMPUTERISED TOMOGRAM ABDOMEN ABNORMAL [None]
  - GAMMA-GLUTAMYLTRANSFERASE INCREASED [None]
  - HEPATITIS CHOLESTATIC [None]
  - JAUNDICE CHOLESTATIC [None]
